FAERS Safety Report 4805553-7 (Version None)
Quarter: 2005Q4

REPORT INFORMATION
  Report Type: 
  Country: None (occurrence: None)
  Receive Date: 20051018
  Receipt Date: 20050930
  Transmission Date: 20060501
  Serious: Yes (Hospitalization, Other)
  Sender: FDA-Public Use
  Company Number: 21012

PATIENT
  Age: 67 Year
  Sex: Male

DRUGS (1)
  1. LEUCOVORIN CALCIUM [Suspect]
     Indication: COLON CANCER
     Dosage: 400MG/M2, 1-2 WEEK, IV
     Route: 042
     Dates: start: 20050816

REACTIONS (1)
  - DIZZINESS [None]
